FAERS Safety Report 23816994 (Version 2)
Quarter: 2024Q2

REPORT INFORMATION
  Report Type: Spontaneous
  Country: US (occurrence: US)
  Receive Date: 20240504
  Receipt Date: 20240529
  Transmission Date: 20240716
  Serious: No
  Sender: FDA-Public Use
  Company Number: US-TEVA-VS-3186126

PATIENT
  Age: 74 Year
  Sex: Female
  Weight: 89.811 kg

DRUGS (15)
  1. VANDAZOLE [Suspect]
     Active Substance: METRONIDAZOLE
     Indication: Herpes virus infection
     Route: 061
     Dates: start: 2024
  2. VANDAZOLE [Suspect]
     Active Substance: METRONIDAZOLE
  3. DOXYCYCLINE [Suspect]
     Active Substance: DOXYCYCLINE\DOXYCYCLINE HYCLATE
     Indication: Bacterial vaginosis
     Route: 065
     Dates: start: 20240412, end: 20240413
  4. CLINDAMYCIN PHOSPHATE [Suspect]
     Active Substance: CLINDAMYCIN PHOSPHATE
     Indication: Bacterial vaginosis
     Route: 065
  5. NITROFURANTOIN [Suspect]
     Active Substance: NITROFURANTOIN
     Route: 065
  6. VALACYCLOVIR [Suspect]
     Active Substance: VALACYCLOVIR HYDROCHLORIDE
     Indication: Bacterial vaginosis
     Dosage: 1 GRAM
     Route: 065
  7. VALACYCLOVIR [Suspect]
     Active Substance: VALACYCLOVIR HYDROCHLORIDE
     Indication: Bacterial vaginosis
     Route: 065
  8. PRIMIDONE [Concomitant]
     Active Substance: PRIMIDONE
     Indication: Tremor
     Route: 065
  9. PRIMIDONE [Concomitant]
     Active Substance: PRIMIDONE
     Indication: Tremor
     Dosage: TIME INTERVAL: 0.33333333 DAYS
     Route: 065
  10. PRIMIDONE [Concomitant]
     Active Substance: PRIMIDONE
     Indication: Tremor
     Dosage: CURRENTLY
     Route: 065
  11. famotidine 50mg [Concomitant]
  12. sucralfate 1mg [Concomitant]
     Route: 065
  13. PAROXETINE [Concomitant]
     Active Substance: PAROXETINE
     Dosage: AT BEDTIME
     Route: 065
  14. MELOXICAM [Concomitant]
     Active Substance: MELOXICAM
     Route: 065
  15. ASPIRIN [Concomitant]
     Active Substance: ASPIRIN
     Route: 065

REACTIONS (8)
  - Malaise [Unknown]
  - Blood pressure increased [Unknown]
  - Emergency care [Unknown]
  - Emotional distress [Unknown]
  - Burning sensation [Recovered/Resolved]
  - Feeling hot [Recovered/Resolved]
  - Off label use [Unknown]
  - Stress [Unknown]
